FAERS Safety Report 9056427 (Version 3)
Quarter: 2013Q2

REPORT INFORMATION
  Report Type: Spontaneous
  Country: US (occurrence: US)
  Receive Date: 20130204
  Receipt Date: 20130412
  Transmission Date: 20140414
  Serious: Yes (Hospitalization)
  Sender: FDA-Public Use
  Company Number: US-JNJFOC-20130114245

PATIENT
  Age: 53 Year
  Sex: Male
  Weight: 106.5 kg

DRUGS (20)
  1. XARELTO [Suspect]
     Indication: KNEE ARTHROPLASTY
     Route: 048
     Dates: start: 20121108, end: 20121109
  2. XARELTO [Suspect]
     Indication: THROMBOSIS PROPHYLAXIS
     Route: 048
     Dates: start: 20121108, end: 20121109
  3. CELEBREX [Suspect]
     Indication: PRODUCT USED FOR UNKNOWN INDICATION
     Route: 048
  4. ACETAMINOPHEN [Concomitant]
     Dosage: 4 TIMES AS NECESSARY
     Route: 048
     Dates: start: 20121107, end: 20121111
  5. FENTANYL [Concomitant]
     Dosage: ONCE
     Route: 042
     Dates: start: 20121107, end: 20121109
  6. OXYCODONE [Concomitant]
     Dosage: EVERY 4 HOURS AS NECESSARY
     Route: 048
     Dates: start: 20121109, end: 20121111
  7. MAGNESIUM HYDROXIDE [Concomitant]
     Dosage: AT BED TIME AS NECESSARY
     Route: 048
     Dates: start: 20121109, end: 20121111
  8. ALBUTEROL [Concomitant]
     Dosage: VIA NEBULIZER EVERY 6 HOURS
     Route: 065
     Dates: start: 20121107, end: 20121111
  9. EMEND [Concomitant]
     Dosage: AS NECESSARY DAILY
     Route: 048
     Dates: start: 20121107
  10. CALCIUM CHLORIDE [Concomitant]
     Dosage: ONCE
     Route: 042
     Dates: start: 20121107
  11. CEFAZOLIN [Concomitant]
     Dosage: ONCE
     Route: 042
     Dates: start: 20121107, end: 20121110
  12. DEXAMETHASONE [Concomitant]
     Dosage: ONCE
     Route: 042
     Dates: start: 20121107, end: 20121109
  13. COLACE [Concomitant]
     Route: 048
     Dates: start: 20121109, end: 20121111
  14. DILAUDID [Concomitant]
     Dosage: ONCE
     Route: 042
     Dates: start: 20121109
  15. MAGNESIUM CITRATE [Concomitant]
     Dosage: AS NECESSARY DAILY
     Route: 048
     Dates: start: 20121107, end: 20121111
  16. MORPHINE [Concomitant]
     Dosage: EVERY THREE HOURS AS NECESSARY
     Route: 042
     Dates: start: 20121107, end: 20121111
  17. NICODERM [Concomitant]
     Route: 062
     Dates: start: 20121107, end: 20121111
  18. OXYCONTIN [Concomitant]
     Route: 048
     Dates: start: 20121107, end: 20121111
  19. OMEPRAZOLE [Concomitant]
     Dosage: AFTER FOOD DAILY
     Route: 048
     Dates: start: 20121107, end: 20121111
  20. BISACODYL [Concomitant]
     Dosage: AS NECESSARY
     Route: 054
     Dates: start: 20121109, end: 20121111

REACTIONS (1)
  - Haematoma [Recovered/Resolved]
